FAERS Safety Report 14928244 (Version 2)
Quarter: 2018Q2

REPORT INFORMATION
  Report Type: Spontaneous
  Country: US (occurrence: US)
  Receive Date: 20180523
  Receipt Date: 20180626
  Transmission Date: 20180711
  Serious: Yes (Other)
  Sender: FDA-Public Use
  Company Number: US-PFIZER INC-2018209652

PATIENT
  Age: 58 Year
  Sex: Male

DRUGS (1)
  1. SUTENT [Suspect]
     Active Substance: SUNITINIB MALATE
     Indication: RENAL CANCER
     Dosage: 50 MG, CYCLIC (TAKE 1 CAPSULE BY MOUTH EVERY DAY WHOLE WITH WATER DAYS 1-28 OF 42 DAY CYCLE)
     Route: 048
     Dates: start: 201804

REACTIONS (13)
  - Drug dose omission [Unknown]
  - Dry skin [Unknown]
  - Feeling abnormal [Recovering/Resolving]
  - Blood pressure increased [Unknown]
  - Oral candidiasis [Recovered/Resolved]
  - Hypothyroidism [Unknown]
  - Anaemia [Unknown]
  - Pain in extremity [Unknown]
  - Burning sensation [Unknown]
  - Limb discomfort [Unknown]
  - Dysgeusia [Unknown]
  - Erythema [Unknown]
  - Musculoskeletal pain [Unknown]
